FAERS Safety Report 16667118 (Version 1)
Quarter: 2019Q3

REPORT INFORMATION
  Report Type: Spontaneous
  Country: FR (occurrence: FR)
  Receive Date: 20190805
  Receipt Date: 20190805
  Transmission Date: 20191004
  Serious: Yes (Death, Hospitalization, Other)
  Sender: FDA-Public Use
  Company Number: FR-BIOGEN-2015BI041172

PATIENT
  Age: 43 Year
  Sex: Male

DRUGS (4)
  1. GILENYA [Suspect]
     Active Substance: FINGOLIMOD HYDROCHLORIDE
     Route: 065
     Dates: start: 20150212, end: 20150318
  2. TYSABRI [Suspect]
     Active Substance: NATALIZUMAB
     Indication: MULTIPLE SCLEROSIS
     Route: 042
     Dates: start: 20101008, end: 20141230
  3. FAMPYRA [Suspect]
     Active Substance: DALFAMPRIDINE
     Indication: PRODUCT USED FOR UNKNOWN INDICATION
     Route: 065
  4. GILENYA [Suspect]
     Active Substance: FINGOLIMOD HYDROCHLORIDE
     Indication: MULTIPLE SCLEROSIS
     Route: 065
     Dates: start: 20150212, end: 20150304

REACTIONS (12)
  - Sepsis [Unknown]
  - Pneumonia aspiration [Fatal]
  - Progressive multifocal leukoencephalopathy [Fatal]
  - Paraparesis [Unknown]
  - Dysarthria [Unknown]
  - JC polyomavirus test positive [Unknown]
  - General physical health deterioration [Fatal]
  - Feeling abnormal [Unknown]
  - Lung disorder [Fatal]
  - Toxic shock syndrome [Fatal]
  - Fatigue [Unknown]
  - Fine motor skill dysfunction [Unknown]

NARRATIVE: CASE EVENT DATE: 20150304
